FAERS Safety Report 8180071-X (Version None)
Quarter: 2012Q1

REPORT INFORMATION
  Report Type: 
  Country: None (occurrence: None)
  Receive Date: 20120302
  Receipt Date: 20120302
  Transmission Date: 20120608
  Serious: No
  Sender: FDA-Public Use
  Company Number: None

PATIENT
  Age: 63 Year
  Sex: Female
  Weight: 61.234 kg

DRUGS (1)
  1. VYTORIN [Suspect]
     Indication: BLOOD CHOLESTEROL
     Route: 048
     Dates: start: 20110115, end: 20120227

REACTIONS (2)
  - MEMORY IMPAIRMENT [None]
  - CONFUSIONAL STATE [None]
